FAERS Safety Report 18544521 (Version 2)
Quarter: 2021Q1

REPORT INFORMATION
  Report Type: Report from Study
  Country: US (occurrence: US)
  Receive Date: 20201125
  Receipt Date: 20210105
  Transmission Date: 20210419
  Serious: No
  Sender: FDA-Public Use
  Company Number: US-BAYER-2020-256495

PATIENT
  Age: 71 Year
  Sex: Female

DRUGS (1)
  1. BETASERON [Suspect]
     Active Substance: INTERFERON BETA-1B
     Indication: MULTIPLE SCLEROSIS
     Dosage: 0.3 MG
     Dates: start: 1994

REACTIONS (6)
  - Cystitis [Recovered/Resolved]
  - Urine odour abnormal [Recovered/Resolved]
  - Ear infection [Recovered/Resolved]
  - Chromaturia [Recovered/Resolved]
  - Balance disorder [Recovering/Resolving]
  - Walking aid user [Not Recovered/Not Resolved]

NARRATIVE: CASE EVENT DATE: 2020
